FAERS Safety Report 20663692 (Version 1)
Quarter: 2022Q2

REPORT INFORMATION
  Report Type: Spontaneous
  Country: FR (occurrence: FR)
  Receive Date: 20220401
  Receipt Date: 20220401
  Transmission Date: 20220721
  Serious: Yes (Death)
  Sender: FDA-Public Use
  Company Number: FR-BAUSCH-BL-2022-007949

PATIENT
  Age: 73 Year
  Sex: Male
  Weight: 97 kg

DRUGS (3)
  1. BRODALUMAB [Suspect]
     Active Substance: BRODALUMAB
     Indication: Psoriasis
     Route: 058
     Dates: start: 20190709, end: 20200917
  2. HUMIRA [Suspect]
     Active Substance: ADALIMUMAB
     Indication: Psoriasis
     Route: 058
     Dates: start: 20190401, end: 20190709
  3. STELARA [Suspect]
     Active Substance: USTEKINUMAB
     Indication: Psoriasis
     Route: 058
     Dates: start: 20201001, end: 20211130

REACTIONS (1)
  - Cholangiocarcinoma [Fatal]

NARRATIVE: CASE EVENT DATE: 20220101
